FAERS Safety Report 9832641 (Version 2)
Quarter: 2014Q1

REPORT INFORMATION
  Report Type: Report from Study
  Country: BR (occurrence: BR)
  Receive Date: 20140121
  Receipt Date: 20140121
  Transmission Date: 20141002
  Serious: Yes (Hospitalization, Other)
  Sender: FDA-Public Use
  Company Number: BR-BAYER-2014-001888

PATIENT
  Age: 33 Year
  Sex: Female

DRUGS (3)
  1. YAZ (24) [Suspect]
     Indication: PREMENSTRUAL SYNDROME
     Dosage: 1 DF, QD
     Route: 048
     Dates: start: 2007, end: 20131223
  2. YAZ (24) [Suspect]
     Indication: ABDOMINAL PAIN
  3. EUTIROX [Concomitant]
     Indication: THYROID DISORDER
     Dosage: 1 DF, QD
     Route: 048
     Dates: start: 2007

REACTIONS (5)
  - Pulmonary embolism [Not Recovered/Not Resolved]
  - Off label use [None]
  - Pain in extremity [Not Recovered/Not Resolved]
  - Dyspnoea [Not Recovered/Not Resolved]
  - Cardiac disorder [None]
